FAERS Safety Report 23374709 (Version 1)
Quarter: 2024Q1

REPORT INFORMATION
  Report Type: Spontaneous
  Country: US (occurrence: US)
  Receive Date: 20240105
  Receipt Date: 20240105
  Transmission Date: 20240410
  Serious: No
  Sender: FDA-Public Use
  Company Number: US-SANDOZ-SDZ2024US000782

PATIENT
  Sex: Male
  Weight: 91.17 kg

DRUGS (1)
  1. CIPROFLOXACIN [Suspect]
     Active Substance: CIPROFLOXACIN
     Indication: Pityriasis rubra pilaris
     Dosage: UNK
     Route: 065

REACTIONS (1)
  - Drug ineffective [Unknown]
